FAERS Safety Report 7844591-7 (Version None)
Quarter: 2011Q4

REPORT INFORMATION
  Report Type: 
  Country: None (occurrence: None)
  Receive Date: 20111025
  Receipt Date: 20111018
  Transmission Date: 20120403
  Serious: Yes (Other)
  Sender: FDA-Public Use
  Company Number: US-JNJFOC-20110809784

PATIENT
  Sex: Female
  Weight: 81.7 kg

DRUGS (2)
  1. REMICADE [Suspect]
     Route: 042
     Dates: start: 20100601
  2. REMICADE [Suspect]
     Indication: CROHN'S DISEASE
     Route: 042
     Dates: start: 20090101

REACTIONS (1)
  - STAPHYLOCOCCAL INFECTION [None]
